FAERS Safety Report 5454111-2 (Version None)
Quarter: 2007Q3

REPORT INFORMATION
  Report Type: 
  Country: None (occurrence: None)
  Receive Date: 20070917
  Receipt Date: 20070702
  Transmission Date: 20080115
  Serious: No
  Sender: FDA-Public Use
  Company Number: US-ASTRAZENECA-2006UW09189

PATIENT
  Age: 44 Year
  Sex: Male
  Weight: 90.9 kg

DRUGS (8)
  1. SEROQUEL [Suspect]
     Indication: SCHIZOPHRENIA
     Dosage: APPROX. 100 TO 600 MG
     Route: 048
     Dates: start: 20020101, end: 20050101
  2. SEROQUEL [Suspect]
     Indication: ANXIETY
     Dosage: APPROX. 100 TO 600 MG
     Route: 048
     Dates: start: 20020101, end: 20050101
  3. ZYPREXA [Suspect]
  4. ABILIFY [Concomitant]
     Dosage: 15 TO 30 MG
     Dates: start: 20030101
  5. GEODON [Concomitant]
     Dates: start: 20050101
  6. HALDOL [Concomitant]
  7. RISPERDAL [Concomitant]
     Dates: start: 20060101
  8. ZYPREXA [Concomitant]
     Dosage: 10 TO 30 MG
     Dates: start: 19990101, end: 20060101

REACTIONS (5)
  - ARTHROPATHY [None]
  - BLOOD CHOLESTEROL INCREASED [None]
  - DIABETES MELLITUS [None]
  - HYPOGLYCAEMIA [None]
  - SUBCUTANEOUS ABSCESS [None]
